FAERS Safety Report 24347780 (Version 1)
Quarter: 2024Q3

REPORT INFORMATION
  Report Type: Spontaneous
  Country: DE (occurrence: DE)
  Receive Date: 20240922
  Receipt Date: 20240922
  Transmission Date: 20241017
  Serious: Yes (Other)
  Sender: ORGANON
  Company Number: DE-ORGANON-O2409DEU001212

PATIENT
  Sex: Female

DRUGS (5)
  1. ORGALUTRAN [Suspect]
     Active Substance: GANIRELIX ACETATE
     Indication: In vitro fertilisation
     Dosage: 0.25MG 1-0-0-0 (ORGALUTRAN 0.25MG/0.5ML INJECTION SOLUTION N3 1 X 5 PIECES)
     Dates: start: 20240803, end: 20240803
  2. ORGALUTRAN [Suspect]
     Active Substance: GANIRELIX ACETATE
     Dosage: 0.25MG 1-0-0-0 (ORGALUTRAN 0.25MG/0.5ML INJECTION SOLUTION N3 1 X 5 PIECES)
     Dates: start: 20240804
  3. MENOTROPINS [Suspect]
     Active Substance: MENOTROPINS
     Indication: In vitro fertilisation
     Dosage: 300 MG 1-0-0-0
     Dates: start: 20240729
  4. GONADOTROPHIN, CHORIONIC [Suspect]
     Active Substance: GONADOTROPHIN, CHORIONIC
     Indication: In vitro fertilisation
     Dosage: UNK
  5. PROGESTERONE [Suspect]
     Active Substance: PROGESTERONE
     Indication: In vitro fertilisation
     Dosage: UNK
     Route: 067

REACTIONS (5)
  - Dyspnoea [Recovered/Resolved]
  - Pharyngeal swelling [Recovered/Resolved]
  - Panic reaction [Recovered/Resolved]
  - Chest discomfort [Recovered/Resolved]
  - Drug intolerance [Unknown]

NARRATIVE: CASE EVENT DATE: 20240803
